FAERS Safety Report 9937533 (Version 2)
Quarter: 2014Q1

REPORT INFORMATION
  Report Type: Spontaneous
  Country: US (occurrence: US)
  Receive Date: 20140303
  Receipt Date: 20140317
  Transmission Date: 20141002
  Serious: Yes (Other)
  Sender: FDA-Public Use
  Company Number: US-BIOGENIDEC-2014BI017214

PATIENT
  Sex: Female
  Weight: 1 kg

DRUGS (1)
  1. AVONEX [Suspect]
     Indication: MATERNAL EXPOSURE TIMING UNSPECIFIED
     Route: 064
     Dates: start: 20120105

REACTIONS (2)
  - Low birth weight baby [Unknown]
  - Foetal growth restriction [Recovered/Resolved with Sequelae]
